FAERS Safety Report 21052347 (Version 1)
Quarter: 2022Q3

REPORT INFORMATION
  Report Type: Spontaneous
  Country: US (occurrence: None)
  Receive Date: 20220706
  Receipt Date: 20220706
  Transmission Date: 20221027
  Serious: Yes (Other)
  Sender: FDA-Public Use
  Company Number: None

PATIENT
  Age: 33 Year
  Sex: Female
  Weight: 93.15 kg

DRUGS (1)
  1. MEDROXYPROGESTERONE ACETATE [Suspect]
     Active Substance: MEDROXYPROGESTERONE ACETATE
     Dosage: OTHER FREQUENCY : Q 3 MONTHS;?
     Route: 030
     Dates: start: 20220519, end: 20220525

REACTIONS (8)
  - Wheezing [None]
  - Cough [None]
  - Vomiting [None]
  - Blood pressure decreased [None]
  - Tachycardia [None]
  - Dyspnoea [None]
  - Diarrhoea [None]
  - Abdominal pain [None]

NARRATIVE: CASE EVENT DATE: 20220519
